FAERS Safety Report 11965422 (Version 1)
Quarter: 2016Q1

REPORT INFORMATION
  Report Type: Report from Study
  Country: FR (occurrence: FR)
  Receive Date: 20160127
  Receipt Date: 20160127
  Transmission Date: 20160526
  Serious: Yes (Other)
  Sender: FDA-Public Use
  Company Number: FR-ROCHE-1700142

PATIENT

DRUGS (1)
  1. TRASTUZUMAB [Suspect]
     Active Substance: TRASTUZUMAB
     Indication: GASTROOESOPHAGEAL CANCER
     Route: 065

REACTIONS (2)
  - Myocardial infarction [Unknown]
  - Cardiac failure [Unknown]
